FAERS Safety Report 8374954-5 (Version None)
Quarter: 2012Q2

REPORT INFORMATION
  Report Type: 
  Country: None (occurrence: None)
  Receive Date: 20120521
  Receipt Date: 20120514
  Transmission Date: 20120825
  Serious: Yes (Other)
  Sender: FDA-Public Use
  Company Number: AT-PFIZER INC-2012116700

PATIENT
  Age: 41 Year
  Sex: Male

DRUGS (2)
  1. LYRICA [Suspect]
     Dosage: 150 MG, 1X/DAY
     Route: 048
     Dates: start: 20120406, end: 20120412
  2. ESCITALOPRAM [Suspect]
     Dosage: 10 MG, 1X/DAY
     Route: 048
     Dates: start: 20120406

REACTIONS (1)
  - HYPOMANIA [None]
